FAERS Safety Report 5842807-X (Version None)
Quarter: 2008Q3

REPORT INFORMATION
  Report Type: 
  Country: None (occurrence: None)
  Receive Date: 20080811
  Receipt Date: 20080801
  Transmission Date: 20090109
  Serious: Yes (Hospitalization)
  Sender: FDA-Public Use
  Company Number: 20085453

PATIENT
  Age: 51 Year
  Sex: Male

DRUGS (1)
  1. LIORESAL [Suspect]
     Indication: MUSCLE SPASTICITY
     Dosage: DAILY, INTRATHECAL
     Route: 037

REACTIONS (12)
  - BACK PAIN [None]
  - CATHETER RELATED COMPLICATION [None]
  - DRUG INEFFECTIVE [None]
  - DRUG WITHDRAWAL SYNDROME [None]
  - HYPERHIDROSIS [None]
  - HYPERTONIA [None]
  - INFLAMMATION [None]
  - MALAISE [None]
  - MEDICAL DEVICE COMPLICATION [None]
  - MEDICAL DEVICE SITE REACTION [None]
  - MUSCLE TIGHTNESS [None]
  - WOUND INFECTION [None]
